FAERS Safety Report 13398393 (Version 1)
Quarter: 2017Q2

REPORT INFORMATION
  Report Type: Spontaneous
  Country: US (occurrence: US)
  Receive Date: 20170403
  Receipt Date: 20170403
  Transmission Date: 20170830
  Serious: No
  Sender: FDA-Public Use
  Company Number: US-BIOGEN-2017BI00378663

PATIENT
  Sex: Male
  Weight: 70.82 kg

DRUGS (1)
  1. AVONEX [Suspect]
     Active Substance: INTERFERON BETA-1A
     Indication: MULTIPLE SCLEROSIS
     Route: 030

REACTIONS (5)
  - Fatigue [Unknown]
  - Dizziness [Unknown]
  - Irritability [Unknown]
  - Myalgia [Unknown]
  - General symptom [Unknown]
